FAERS Safety Report 7759388-6 (Version None)
Quarter: 2011Q3

REPORT INFORMATION
  Report Type: 
  Country: None (occurrence: None)
  Receive Date: 20110919
  Receipt Date: 20110912
  Transmission Date: 20111222
  Serious: Yes (Other)
  Sender: FDA-Public Use
  Company Number: JP-ROCHE-731426

PATIENT
  Age: 19 Year
  Sex: Female

DRUGS (26)
  1. PROGRAF [Suspect]
     Indication: GRAFT VERSUS HOST DISEASE
     Dosage: THERAPY START DATE: BEFORE THE START OF VALGANCICLOVIR
     Route: 048
  2. VANCOMYCIN [Concomitant]
     Route: 041
     Dates: start: 20100511
  3. MIRTAZAPINE [Concomitant]
     Dosage: DRUG NAME: REFLEX (MIRTAZAPINE)
     Route: 048
     Dates: start: 20100506, end: 20100511
  4. AMLODIPINE [Concomitant]
     Route: 048
  5. VFEND [Concomitant]
     Dosage: THERAPY START DATE: BEFORE START OF VALGANCICLOVIR
     Route: 048
  6. LASIX [Concomitant]
     Dosage: THERAPY START DATE: BEFORE THE START OF VALGANCICLOVIR
     Route: 048
  7. LORAZEPAM [Concomitant]
     Route: 048
     Dates: start: 20100505
  8. VALGANCICLOVIR [Suspect]
     Route: 048
     Dates: start: 20100511, end: 20100513
  9. MAXIPIME [Concomitant]
     Route: 042
     Dates: start: 20100510
  10. LANSOPRAZOLE [Concomitant]
     Dosage: THERAPY START DATE: BEOFORE START OF VALGANCICLOVIR
     Route: 048
     Dates: end: 20100518
  11. HUMALOG [Concomitant]
     Dosage: TDD: 16 UT, THERAPY DATES: BEFORE THE START OF VALGANCICLOVIR
     Route: 058
  12. SILECE [Concomitant]
     Dosage: THERAPY DATES: BEFORE THE START OF VALGANCICLOVIR
     Route: 048
  13. MYCOPHENOLATE MOFETIL [Suspect]
     Indication: GRAFT VERSUS HOST DISEASE
     Dosage: THERAPY START DATE: BEFORE THE START OF VALGANCICLOVIR
     Route: 048
  14. PROGRAF [Suspect]
     Route: 048
  15. HUMULIN N [Concomitant]
     Dosage: HUMUN INSULIN GENETICAL RECOMBINATION, THERAPY DATES: BEFORE START OF VALGANCICLOVIR, TDD:20 UT
     Route: 058
  16. NEUTROGIN [Concomitant]
     Route: 041
  17. METHYLPREDNISOLONE SODIUM SUCCINATE [Concomitant]
     Dosage: THERAPY DATES: BEFORE THE START OF VALGANCICLOVIR
     Route: 042
  18. HEPARINE NOVO [Concomitant]
     Dosage: TDD: 500 UT
     Route: 042
     Dates: start: 20100506, end: 20100506
  19. EPINASTINE HYDROCHLORIDE [Concomitant]
     Dosage: DRUG NAME REPORTED: ALENAPION , THERAPY START DATE: BEFORE START OF VALGANCICLOVIR
     Route: 048
     Dates: end: 20100511
  20. SULFAMETHOXAZOLE [Concomitant]
     Dosage: THERAPY START DATE: BEFORE START OF VALGANCICLOVIR
     Route: 048
     Dates: end: 20100511
  21. POLARAMINE [Concomitant]
     Dosage: REPORTED: POLARMINE (CHLORPHENIRAMINE MALAETE), THERAPY START DATE: BEOFORE START OF VALGANCICLOVIR
     Route: 048
  22. VALGANCICLOVIR [Suspect]
     Indication: CYTOMEGALOVIRUS INFECTION
     Route: 048
     Dates: start: 20100505, end: 20100510
  23. LENDORMIN [Concomitant]
     Dosage: THERAPY DATES: BEFORE THE START OF VALGANCICLOVIR
     Route: 048
  24. ZOLOFT [Concomitant]
     Dosage: JZOLOFT: SERTALINE HYDROCHLORIDE, THERAPY START DATE:BEFORE START OF VALGANCICLOVIR
     Route: 048
     Dates: end: 20100505
  25. ALENDRONATE SODIUM [Concomitant]
     Dosage: THERAPY START DATE: BEFORE THE START OF VALGANCICLOVIR
     Route: 048
  26. HUMULIN R [Concomitant]
     Dosage: TDD: 14 UT, THERAPY START DATE: BEOFORE START OF VALGANCICLOVIR
     Route: 058

REACTIONS (3)
  - FLUID RETENTION [None]
  - PANCYTOPENIA [None]
  - STAPHYLOCOCCAL SEPSIS [None]
